FAERS Safety Report 11594215 (Version 1)
Quarter: 2015Q4

REPORT INFORMATION
  Report Type: Spontaneous
  Country: FR (occurrence: FR)
  Receive Date: 20151005
  Receipt Date: 20151005
  Transmission Date: 20160304
  Serious: Yes (Hospitalization, Other)
  Sender: FDA-Public Use
  Company Number: FR-MYLANLABS-2015M1032810

PATIENT

DRUGS (7)
  1. ROTIGOTINE [Interacting]
     Active Substance: ROTIGOTINE
     Indication: PARKINSON^S DISEASE
     Dosage: 6 MG/DAY
     Route: 065
  2. CLOZAPINE. [Interacting]
     Active Substance: CLOZAPINE
     Dosage: 12.5 MG DAY
  3. RASAGILINE [Interacting]
     Active Substance: RASAGILINE
     Indication: PARKINSON^S DISEASE
     Route: 065
  4. PRAMIPEXOLE. [Suspect]
     Active Substance: PRAMIPEXOLE
     Indication: PARKINSON^S DISEASE
     Dosage: 1.31 MG/DAY
     Route: 065
  5. ROPINIROLE. [Interacting]
     Active Substance: ROPINIROLE
     Indication: PARKINSON^S DISEASE
     Route: 065
  6. CLOZAPINE. [Interacting]
     Active Substance: CLOZAPINE
     Indication: PARKINSON^S DISEASE
     Dosage: 6.25-18.75 MG/DAY
     Route: 065
  7. STALEVO [Interacting]
     Active Substance: CARBIDOPA\ENTACAPONE\LEVODOPA
     Indication: PARKINSON^S DISEASE
     Dosage: 225 MG/DAY
     Route: 065

REACTIONS (7)
  - Stereotypy [Unknown]
  - Depression [Unknown]
  - Suicidal ideation [Unknown]
  - Drug interaction [Unknown]
  - Sedation [Unknown]
  - Compulsive shopping [Unknown]
  - Hypersexuality [Recovering/Resolving]
